FAERS Safety Report 8916147 (Version 1)
Quarter: 2012Q4

REPORT INFORMATION
  Report Type: 
  Country: US (occurrence: US)
  Receive Date: 20121120
  Receipt Date: 20121120
  Transmission Date: 20130627
  Serious: No
  Sender: FDA-Public Use
  Company Number: US-ASTRAZENECA-2012SE85347

PATIENT
  Age: 61 Year
  Sex: Male

DRUGS (23)
  1. SYMBICORT PMDI [Suspect]
     Dosage: 160/4.5 MDI,2 PUFFS,TWO TIMES A DAY
     Route: 055
     Dates: start: 20120826
  2. METOPROLOL SUCCINATE [Suspect]
     Route: 048
     Dates: start: 20120826
  3. OMEPRAZOLE [Suspect]
     Dosage: IN AM
     Route: 048
     Dates: start: 20120815
  4. AMBIEN [Concomitant]
     Indication: SLEEP DISORDER
  5. ASPIRIN [Concomitant]
  6. FAMOTIDINE [Concomitant]
  7. GLIPIZIDE [Concomitant]
  8. INSULIN NPH [Concomitant]
  9. PLAVIX [Concomitant]
  10. LASIX [Concomitant]
  11. RENVELA [Concomitant]
  12. LIPITOR [Concomitant]
  13. ROPINIROLE [Concomitant]
  14. LOSARTAN [Concomitant]
  15. SPIRIVA [Concomitant]
  16. METOLAZONE [Concomitant]
  17. TESSALON PERLES [Concomitant]
     Indication: COUGH
  18. TRAMADOL [Concomitant]
     Indication: PAIN
  19. MVI ADULT MULTIVITAMIN [Concomitant]
  20. VENTOLIN HFA [Concomitant]
  21. NITROGLYCERINE [Concomitant]
     Indication: CHEST PAIN
  22. VICODIN [Concomitant]
     Indication: PAIN
  23. NORVASC [Concomitant]

REACTIONS (1)
  - Type 2 diabetes mellitus [Unknown]
